FAERS Safety Report 4335842-4 (Version None)
Quarter: 2004Q2

REPORT INFORMATION
  Report Type: 
  Country: None (occurrence: None)
  Receive Date: 20040409
  Receipt Date: 20040406
  Transmission Date: 20050107
  Serious: Yes (Hospitalization)
  Sender: FDA-Public Use
  Company Number: PHBS2004TR04607

PATIENT
  Age: 74 Year
  Sex: Female

DRUGS (5)
  1. FORADIL [Suspect]
     Indication: ASTHMA
  2. MIFLONIDE [Concomitant]
  3. VENTOLIN [Concomitant]
  4. THEOPHYLLINE [Concomitant]
  5. PREDNOL [Concomitant]

REACTIONS (3)
  - ASTHMA [None]
  - URINARY TRACT INFECTION [None]
  - URTICARIA [None]
